FAERS Safety Report 18394929 (Version 12)
Quarter: 2025Q1

REPORT INFORMATION
  Report Type: Report from Study
  Country: CA (occurrence: CA)
  Receive Date: 20201016
  Receipt Date: 20250130
  Transmission Date: 20250409
  Serious: Yes (Hospitalization, Other)
  Sender: TAKEDA
  Company Number: CA-TAKEDA-2020TUS043111

PATIENT
  Age: 55 Year
  Sex: Female

DRUGS (29)
  1. VEDOLIZUMAB [Suspect]
     Active Substance: VEDOLIZUMAB
     Indication: Colitis ulcerative
  2. VEDOLIZUMAB [Suspect]
     Active Substance: VEDOLIZUMAB
  3. VEDOLIZUMAB [Suspect]
     Active Substance: VEDOLIZUMAB
  4. VEDOLIZUMAB [Suspect]
     Active Substance: VEDOLIZUMAB
  5. VEDOLIZUMAB [Suspect]
     Active Substance: VEDOLIZUMAB
     Dosage: 300 MILLIGRAM, Q4WEEKS
     Dates: start: 20220602
  6. VEDOLIZUMAB [Suspect]
     Active Substance: VEDOLIZUMAB
     Dosage: 300 MILLIGRAM, Q4WEEKS
  7. VEDOLIZUMAB [Suspect]
     Active Substance: VEDOLIZUMAB
     Dosage: 300 MILLIGRAM, Q4WEEKS
  8. CORTISONE [Suspect]
     Active Substance: CORTISONE
     Indication: Product used for unknown indication
  9. HYDROCORTISONE SODIUM SUCCINATE [Suspect]
     Active Substance: HYDROCORTISONE SODIUM SUCCINATE
     Indication: Product used for unknown indication
  10. BUDESONIDE [Concomitant]
     Active Substance: BUDESONIDE
  11. MESALAMINE [Concomitant]
     Active Substance: MESALAMINE
  12. MESALAMINE [Concomitant]
     Active Substance: MESALAMINE
  13. LANSOPRAZOLE [Concomitant]
     Active Substance: LANSOPRAZOLE
  14. CETIRIZINE HYDROCHLORIDE [Concomitant]
     Active Substance: CETIRIZINE HYDROCHLORIDE
  15. LOTEPREDNOL ETABONATE [Concomitant]
     Active Substance: LOTEPREDNOL ETABONATE
  16. AMLODIPINE [Concomitant]
     Active Substance: AMLODIPINE BESYLATE
  17. BISOPROLOL [Concomitant]
     Active Substance: BISOPROLOL
  18. DIPHENHYDRAMINE [Concomitant]
     Active Substance: DIPHENHYDRAMINE
  19. HYDROCHLOROTHIAZIDE [Concomitant]
     Active Substance: HYDROCHLOROTHIAZIDE
  20. RANITIDINE [Concomitant]
     Active Substance: RANITIDINE
  21. FAMOTIDINE [Concomitant]
     Active Substance: FAMOTIDINE
  22. PREDNISONE [Concomitant]
     Active Substance: PREDNISONE
  23. VITAMIN C [Concomitant]
     Active Substance: ASCORBIC ACID
  24. VITAMIN E [Concomitant]
     Active Substance: .ALPHA.-TOCOPHEROL
  25. WOMEN^S MULTIVITE [Concomitant]
  26. CALCIUM [Concomitant]
     Active Substance: CALCIUM
  27. MAGNESIUM [Concomitant]
     Active Substance: MAGNESIUM
  28. VITAMIN D3 [Concomitant]
     Active Substance: CHOLECALCIFEROL
  29. Collagen30 with biotin [Concomitant]

REACTIONS (7)
  - Colitis ulcerative [Recovering/Resolving]
  - Cataract [Unknown]
  - Anaphylactic reaction [Unknown]
  - Intervertebral disc protrusion [Unknown]
  - Off label use [Unknown]
  - Multiple allergies [Unknown]
  - Drug ineffective [Unknown]

NARRATIVE: CASE EVENT DATE: 20201004
